FAERS Safety Report 12652316 (Version 30)
Quarter: 2019Q3

REPORT INFORMATION
  Report Type: Report from Study
  Country: CA (occurrence: CA)
  Receive Date: 20160815
  Receipt Date: 20190909
  Transmission Date: 20191004
  Serious: Yes (Other)
  Sender: FDA-Public Use
  Company Number: PHHY2016CA075863

PATIENT
  Age: 87 Year
  Sex: Male

DRUGS (9)
  1. SANDOSTATIN LAR DEPOT [Suspect]
     Active Substance: OCTREOTIDE ACETATE
     Indication: CARCINOID TUMOUR
     Dosage: 60 MG, EVERY 2 WEEKS
     Route: 030
  2. SANDOSTATIN LAR DEPOT [Suspect]
     Active Substance: OCTREOTIDE ACETATE
     Dosage: 60 MG, Q2W EVERY 2 WEEKS
     Route: 030
     Dates: start: 20170709
  3. LACTULOSE. [Concomitant]
     Active Substance: LACTULOSE
     Indication: PRODUCT USED FOR UNKNOWN INDICATION
     Route: 065
  4. SANDOSTATIN [Suspect]
     Active Substance: OCTREOTIDE ACETATE
     Indication: NEUROENDOCRINE TUMOUR
  5. SANDOSTATIN LAR DEPOT [Suspect]
     Active Substance: OCTREOTIDE ACETATE
     Dosage: 60 MG, QMO, EVERY 4 WEEKS
     Route: 030
     Dates: start: 20160819, end: 20170613
  6. SANDOSTATIN [Suspect]
     Active Substance: OCTREOTIDE ACETATE
     Indication: CARCINOID TUMOUR
     Dosage: 100 UG, ONCE/SINGLE, TEST DOSE ONCE
     Route: 058
     Dates: start: 20160506, end: 20160506
  7. CRESTOR [Concomitant]
     Active Substance: ROSUVASTATIN CALCIUM
     Indication: PRODUCT USED FOR UNKNOWN INDICATION
     Dosage: 10 MG, QD
     Route: 065
  8. SANDOSTATIN LAR DEPOT [Suspect]
     Active Substance: OCTREOTIDE ACETATE
     Indication: NEUROENDOCRINE TUMOUR
     Dosage: 30 MG, QMO, EVERY 4 WEEKS
     Route: 030
     Dates: start: 20160517, end: 20160713
  9. SANDOSTATIN LAR DEPOT [Suspect]
     Active Substance: OCTREOTIDE ACETATE
     Dosage: UNK
     Route: 030
     Dates: start: 20190903

REACTIONS (33)
  - Diarrhoea [Not Recovered/Not Resolved]
  - Palpitations [Unknown]
  - Somnolence [Unknown]
  - Flatulence [Unknown]
  - Injection site swelling [Unknown]
  - Injection site mass [Unknown]
  - Heart rate irregular [Unknown]
  - Hiccups [Unknown]
  - Fatigue [Not Recovered/Not Resolved]
  - Weight decreased [Not Recovered/Not Resolved]
  - Oesophageal spasm [Unknown]
  - Nausea [Unknown]
  - Dizziness [Unknown]
  - Abdominal discomfort [Recovered/Resolved]
  - Atrial fibrillation [Unknown]
  - Balance disorder [Unknown]
  - Blood pressure systolic increased [Unknown]
  - Hepatomegaly [Unknown]
  - Heart rate decreased [Not Recovered/Not Resolved]
  - Injection site erythema [Unknown]
  - Inappropriate schedule of product administration [Unknown]
  - Laziness [Unknown]
  - Hypotension [Unknown]
  - Palpitations [Recovered/Resolved]
  - Gastrointestinal sounds abnormal [Unknown]
  - Asthenia [Not Recovered/Not Resolved]
  - Abdominal pain [Not Recovered/Not Resolved]
  - Choking [Unknown]
  - Ascites [Unknown]
  - Gait disturbance [Unknown]
  - Insomnia [Unknown]
  - Abdominal discomfort [Unknown]
  - Needle issue [Unknown]

NARRATIVE: CASE EVENT DATE: 20160716
